FAERS Safety Report 8467420-X (Version None)
Quarter: 2012Q2

REPORT INFORMATION
  Report Type: 
  Country: None (occurrence: None)
  Receive Date: 20120323
  Receipt Date: 20110815
  Transmission Date: 20120825
  Serious: Yes (Other)
  Sender: FDA-Public Use
  Company Number: 163-21880-11082010

PATIENT
  Age: 83 Year
  Sex: Female

DRUGS (10)
  1. MAGNESIUM (MAGNESIUM) [Concomitant]
  2. AMLODIPINE BESYLATE [Concomitant]
  3. FISH OIL (FISH OIL) [Concomitant]
  4. ASCORBIC ACID [Concomitant]
  5. REVLIMID [Suspect]
     Indication: MULTIPLE MYELOMA
     Dosage: 25 MG, 1 IN 1 D, PO
     Route: 048
     Dates: start: 20110401
  6. CALCIUM CARBONATE [Concomitant]
  7. VITAMIN B12 [Concomitant]
  8. SINGULAIR [Concomitant]
  9. COUMADIN [Concomitant]
  10. ASPIRIN [Concomitant]

REACTIONS (1)
  - THROMBOSIS [None]
